FAERS Safety Report 17279228 (Version 1)
Quarter: 2020Q1

REPORT INFORMATION
  Report Type: Spontaneous
  Country: NL (occurrence: DE)
  Receive Date: 20200116
  Receipt Date: 20200116
  Transmission Date: 20200409
  Serious: Yes (Hospitalization)
  Sender: FDA-Public Use
  Company Number: DE-FRESENIUS KABI-FK201913328

PATIENT
  Sex: Female
  Weight: 75 kg

DRUGS (6)
  1. APREPITANT. [Concomitant]
     Active Substance: APREPITANT
     Indication: PROPHYLAXIS
     Dosage: DAY 1-3
     Route: 065
  2. FLUOROURACIL. [Concomitant]
     Active Substance: FLUOROURACIL
     Indication: ADENOCARCINOMA OF COLON
     Dosage: LAST ADMINISTRATION BEFORE ONSET: 30-SEP-2019
     Route: 042
     Dates: start: 20190325, end: 20190930
  3. RAMUCIRUMAB [Concomitant]
     Active Substance: RAMUCIRUMAB
     Indication: ADENOCARCINOMA OF COLON
     Dosage: LAST ADMINISTRATION BEFORE ONSET: 30-SEP-2019
     Route: 042
     Dates: start: 20190902
  4. IRINOTECAN (MANUFACTURER UNKNOWN) [Suspect]
     Active Substance: IRINOTECAN
     Indication: ADENOCARCINOMA OF COLON
     Dosage: LAST ADMINISTRATION BEFORE ONSET: 30-SEP-2019
     Route: 042
     Dates: start: 20190902
  5. FOLATE SODIUM [Concomitant]
     Active Substance: FOLATE SODIUM
     Indication: ADENOCARCINOMA OF COLON
     Dosage: LAST ADMINISTRATION BEFORE ONSET: 30-SEP-2019
     Route: 042
     Dates: start: 20190325, end: 20190930
  6. GRANISETRON [Concomitant]
     Active Substance: GRANISETRON
     Indication: PROPHYLAXIS
     Dosage: PRE-INFUSION
     Route: 041

REACTIONS (2)
  - Fatigue [Recovered/Resolved]
  - General physical health deterioration [Recovered/Resolved]

NARRATIVE: CASE EVENT DATE: 20191009
